FAERS Safety Report 4538908-9 (Version None)
Quarter: 2004Q4

REPORT INFORMATION
  Report Type: 
  Country: None (occurrence: None)
  Receive Date: 20041223
  Receipt Date: 20041014
  Transmission Date: 20050328
  Serious: No
  Sender: FDA-Public Use
  Company Number: US-JNJFOC-20041005444

PATIENT
  Age: 48 Year
  Sex: Female
  Weight: 56.6996 kg

DRUGS (2)
  1. ORTHO EVRA [Suspect]
     Indication: MENSTRUATION IRREGULAR
     Dosage: 1 DOSE(S), 3 IN 4 WEEK, TRANSDERMAL
     Route: 062
     Dates: start: 20041003
  2. DIURETIC (DIURETICS) [Concomitant]

REACTIONS (5)
  - ABDOMINAL PAIN [None]
  - BREAST TENDERNESS [None]
  - DIARRHOEA [None]
  - HYPERTROPHY BREAST [None]
  - NAUSEA [None]
